FAERS Safety Report 11711720 (Version 1)
Quarter: 2015Q4

REPORT INFORMATION
  Report Type: Spontaneous
  Country: US (occurrence: US)
  Receive Date: 20151104
  Receipt Date: 20151104
  Transmission Date: 20160304
  Serious: No
  Sender: FDA-Public Use
  Company Number: US-ELI_LILLY_AND_COMPANY-US201106002454

PATIENT
  Age: 78 Year
  Sex: Female

DRUGS (1)
  1. FORTEO [Suspect]
     Active Substance: TERIPARATIDE
     Indication: OSTEOPOROSIS
     Dosage: 20 UG, QD
     Dates: start: 20110512, end: 20110524

REACTIONS (9)
  - Herpes zoster [Unknown]
  - Tachycardia [Unknown]
  - Diarrhoea [Unknown]
  - Asthenia [Unknown]
  - Intentional product misuse [Unknown]
  - Hypertension [Unknown]
  - Abdominal pain [Unknown]
  - Muscle spasms [Unknown]
  - Decreased appetite [Unknown]

NARRATIVE: CASE EVENT DATE: 20110524
